FAERS Safety Report 10245917 (Version 2)
Quarter: 2014Q2

REPORT INFORMATION
  Report Type: Spontaneous
  Country: AU (occurrence: AU)
  Receive Date: 20140619
  Receipt Date: 20140619
  Transmission Date: 20141212
  Serious: Yes (Other)
  Sender: FDA-Public Use
  Company Number: AU-BRISTOL-MYERS SQUIBB COMPANY-20750709

PATIENT
  Age: 68 Year
  Sex: Male
  Weight: 90 kg

DRUGS (10)
  1. ELIQUIS [Suspect]
     Indication: CEREBROVASCULAR ACCIDENT PROPHYLAXIS
     Dosage: ON ELIQUIS SINCE MARCH , YEAR NOT MENTIONED
     Dates: start: 20140312
  2. ALLOPURINOL [Concomitant]
  3. COVERSYL [Concomitant]
  4. METOPROLOL [Concomitant]
  5. NEXIUM [Concomitant]
  6. PARACETAMOL [Concomitant]
     Dosage: QD
  7. SPIRIVA [Concomitant]
  8. SYMBICORT [Concomitant]
  9. MOTILIUM [Concomitant]
     Dosage: QHS
  10. MAXOLON [Concomitant]
     Dosage: QHS

REACTIONS (2)
  - Mallory-Weiss syndrome [Recovered/Resolved]
  - Gastrointestinal haemorrhage [Unknown]
